FAERS Safety Report 12035709 (Version 2)
Quarter: 2016Q1

REPORT INFORMATION
  Report Type: Report from Study
  Country: US (occurrence: US)
  Receive Date: 20160207
  Receipt Date: 20160218
  Transmission Date: 20160526
  Serious: Yes (Hospitalization, Other)
  Sender: FDA-Public Use
  Company Number: US-AMGEN-USASL2016013169

PATIENT
  Age: 64 Year
  Sex: Female

DRUGS (1)
  1. ENBREL [Suspect]
     Active Substance: ETANERCEPT
     Indication: RHEUMATOID ARTHRITIS
     Dosage: UNK
     Route: 065
     Dates: start: 2005

REACTIONS (13)
  - Abasia [Unknown]
  - Dizziness [Unknown]
  - Fall [Unknown]
  - Back pain [Unknown]
  - Loss of consciousness [Unknown]
  - Amnesia [Unknown]
  - Cerebral disorder [Unknown]
  - Cardiac disorder [Unknown]
  - Nausea [Unknown]
  - Secretion discharge [Unknown]
  - Vomiting [Unknown]
  - Pain [Unknown]
  - Mobility decreased [Unknown]

NARRATIVE: CASE EVENT DATE: 201505
